FAERS Safety Report 18485571 (Version 2)
Quarter: 2021Q1

REPORT INFORMATION
  Report Type: Spontaneous
  Country: JP (occurrence: JP)
  Receive Date: 20201110
  Receipt Date: 20210128
  Transmission Date: 20210419
  Serious: Yes (Hospitalization)
  Sender: FDA-Public Use
  Company Number: JP-PFIZER INC-2020442394

PATIENT
  Age: 73 Year
  Sex: Male
  Weight: 58.9 kg

DRUGS (6)
  1. BRAFTOVI [Suspect]
     Active Substance: ENCORAFENIB
     Dosage: 300 UNK
     Dates: start: 20200115, end: 20200129
  2. MEKTOVI [Suspect]
     Active Substance: BINIMETINIB
     Dosage: 30 UNK
     Dates: start: 20200228
  3. BRAFTOVI [Suspect]
     Active Substance: ENCORAFENIB
     Dosage: 200 MG
     Dates: start: 20200228
  4. BRAFTOVI [Suspect]
     Active Substance: ENCORAFENIB
     Indication: MALIGNANT MELANOMA
     Dosage: 450 MG
     Route: 048
     Dates: start: 20190604, end: 202010
  5. MEKTOVI [Suspect]
     Active Substance: BINIMETINIB
     Dosage: 60 UNK
     Dates: start: 20200115, end: 20200129
  6. MEKTOVI [Suspect]
     Active Substance: BINIMETINIB
     Indication: MALIGNANT MELANOMA
     Dosage: 90 MG
     Route: 048
     Dates: start: 20190604, end: 202010

REACTIONS (4)
  - Anaemia [Unknown]
  - Anaemia [Recovered/Resolved]
  - C-reactive protein increased [Unknown]
  - Malaise [Unknown]

NARRATIVE: CASE EVENT DATE: 20200105
